FAERS Safety Report 11457342 (Version 2)
Quarter: 2015Q3

REPORT INFORMATION
  Report Type: Report from Study
  Country: PH (occurrence: PH)
  Receive Date: 20150904
  Receipt Date: 20150916
  Transmission Date: 20151125
  Serious: Yes (Other)
  Sender: FDA-Public Use
  Company Number: PHHY2015PH103858

PATIENT
  Age: 54 Year
  Sex: Male
  Weight: 62 kg

DRUGS (3)
  1. GLIVEC [Suspect]
     Active Substance: IMATINIB MESYLATE
     Indication: GASTROINTESTINAL STROMAL TUMOUR
     Dosage: 400 MG, QD
     Route: 048
     Dates: start: 20131219
  2. FENOFIBRATE. [Concomitant]
     Active Substance: FENOFIBRATE
     Indication: DYSLIPIDAEMIA
     Dosage: 200 MG, QD
     Route: 048
     Dates: start: 2007
  3. DECONGESTANT                       /00949501/ [Concomitant]
     Indication: RHINITIS ALLERGIC
     Dosage: 1 DF, 1 TO 3 A DAY
     Route: 048

REACTIONS (4)
  - Retinal detachment [Recovering/Resolving]
  - Blindness transient [Unknown]
  - Vision blurred [Recovering/Resolving]
  - Cough [Unknown]

NARRATIVE: CASE EVENT DATE: 201502
